FAERS Safety Report 12173549 (Version 1)
Quarter: 2016Q1

REPORT INFORMATION
  Report Type: Spontaneous
  Country: DE (occurrence: DE)
  Receive Date: 20160311
  Receipt Date: 20160311
  Transmission Date: 20160526
  Serious: Yes (Other)
  Sender: FDA-Public Use
  Company Number: DE-GUERBET LLC-1048968

PATIENT
  Age: 42 Year
  Sex: Male

DRUGS (3)
  1. DOTAREM [Suspect]
     Active Substance: GADOTERATE MEGLUMINE
     Indication: NUCLEAR MAGNETIC RESONANCE IMAGING ABDOMINAL
     Route: 042
     Dates: start: 20160222, end: 20160222
  2. MANNITOL. [Concomitant]
     Active Substance: MANNITOL
     Route: 048
     Dates: start: 20160222, end: 20160222
  3. BUSCOPAN(BUTYLSCOPOLAMINIUM BROMIDE) [Concomitant]
     Route: 042
     Dates: start: 20160222, end: 20160222

REACTIONS (4)
  - Injection site pain [Recovered/Resolved]
  - Chest discomfort [Recovered/Resolved]
  - Blood pressure decreased [Recovered/Resolved]
  - Dyspnoea [Recovered/Resolved]

NARRATIVE: CASE EVENT DATE: 20160222
